FAERS Safety Report 15775459 (Version 1)
Quarter: 2018Q4

REPORT INFORMATION
  Report Type: Spontaneous
  Country: US (occurrence: US)
  Receive Date: 20181231
  Receipt Date: 20181231
  Transmission Date: 20190205
  Serious: No
  Sender: FDA-Public Use
  Company Number: US-DRREDDYS-USA/USA/17/0094907

PATIENT
  Age: 62 Year
  Sex: Male
  Weight: 83.6 kg

DRUGS (3)
  1. VITAMIN D 1000MG [Concomitant]
     Indication: VITAMIN SUPPLEMENTATION
  2. HABITROL [Suspect]
     Active Substance: NICOTINE
     Indication: SMOKING CESSATION THERAPY
     Route: 062
     Dates: start: 20171128
  3. TAMSULOSIN [Concomitant]
     Active Substance: TAMSULOSIN
     Indication: PROSTATIC ABSCESS
     Dosage: AT BED TIME

REACTIONS (5)
  - Skin exfoliation [Recovering/Resolving]
  - Treatment noncompliance [Unknown]
  - Application site pruritus [Recovering/Resolving]
  - Rash erythematous [Recovering/Resolving]
  - Overdose [Unknown]

NARRATIVE: CASE EVENT DATE: 20171129
